FAERS Safety Report 11792752 (Version 1)
Quarter: 2015Q4

REPORT INFORMATION
  Report Type: Spontaneous
  Country: US (occurrence: None)
  Receive Date: 20151130
  Receipt Date: 20151130
  Transmission Date: 20160305
  Serious: Yes (Other)
  Sender: FDA-Public Use
  Company Number: 2015US-106297

PATIENT
  Age: 19 Year
  Sex: Male

DRUGS (1)
  1. SALBUTAMOL (SALBUTAMOL) UNKNOWN [Suspect]
     Active Substance: ALBUTEROL
     Indication: ASTHMA
     Dosage: CONTINUOUS ALBUTEROL (}17.5MG HAD BEEN GIVEN), UNKNOWN

REACTIONS (6)
  - Anxiety [None]
  - Lactic acidosis [None]
  - Respiratory failure [None]
  - Condition aggravated [None]
  - Hypotension [None]
  - Influenza A virus test positive [None]
